FAERS Safety Report 4928115-X (Version None)
Quarter: 2006Q1

REPORT INFORMATION
  Report Type: 
  Country: None (occurrence: None)
  Receive Date: 20060223
  Receipt Date: 20060210
  Transmission Date: 20060701
  Serious: Yes (Other)
  Sender: FDA-Public Use
  Company Number: GXKR2006GR00888

PATIENT
  Age: 65 Year
  Sex: Male

DRUGS (3)
  1. METHYLPREDNISOLONE [Suspect]
     Indication: MYCOSIS FUNGOIDES
     Dosage: 8 MG, QD
  2. INTERFERON(INTERFERON) [Suspect]
     Indication: MYCOSIS FUNGOIDES
     Dosage: 3 MILLION UNITS
  3. PREDNISOONE (NGX)(PREDNISONE) [Suspect]
     Indication: ANTIBIOTIC PROPHYLAXIS
     Dosage: 40 MG, BID, INTRAVENOUS
     Route: 042

REACTIONS (2)
  - MULTI-ORGAN FAILURE [None]
  - TUMOUR LYSIS SYNDROME [None]
